FAERS Safety Report 13964274 (Version 1)
Quarter: 2017Q3

REPORT INFORMATION
  Report Type: Spontaneous
  Country: US (occurrence: None)
  Receive Date: 20170913
  Receipt Date: 20170913
  Transmission Date: 20171128
  Serious: Yes (Disabling, Other)
  Sender: FDA-Public Use
  Company Number: None

PATIENT
  Age: 65 Year
  Sex: Female
  Weight: 63.5 kg

DRUGS (5)
  1. FLORNSIMIDE [Concomitant]
  2. LOSARTAN. [Concomitant]
     Active Substance: LOSARTAN
  3. PRALUENT [Suspect]
     Active Substance: ALIROCUMAB
     Indication: BLOOD CHOLESTEROL INCREASED
     Dates: start: 20170413, end: 20170705
  4. CARVEDILOL. [Concomitant]
     Active Substance: CARVEDILOL
  5. OMEPRAZOLE. [Concomitant]
     Active Substance: OMEPRAZOLE

REACTIONS (6)
  - Gait inability [None]
  - Tenderness [None]
  - Urinary tract infection [None]
  - Blood creatinine increased [None]
  - Anger [None]
  - Muscle spasms [None]

NARRATIVE: CASE EVENT DATE: 20170427
